FAERS Safety Report 25401819 (Version 2)
Quarter: 2025Q2

REPORT INFORMATION
  Report Type: Spontaneous
  Country: US (occurrence: US)
  Receive Date: 20250605
  Receipt Date: 20250606
  Transmission Date: 20250717
  Serious: No
  Sender: PFIZER
  Company Number: US-PFIZER INC-202500115493

PATIENT
  Age: 47 Year
  Sex: Female

DRUGS (7)
  1. IBRANCE [Suspect]
     Active Substance: PALBOCICLIB
     Indication: Breast cancer
     Dosage: 125 MG, 1X/DAY, 21 DAYS ON AND 7 OFF
     Dates: start: 20250507
  2. FASLODEX [Concomitant]
     Active Substance: FULVESTRANT
  3. ITOVEBI [Concomitant]
     Active Substance: INAVOLISIB
  4. HYDROCHLOROTHIAZIDE [Concomitant]
     Active Substance: HYDROCHLOROTHIAZIDE
  5. LORATADINE [Concomitant]
     Active Substance: LORATADINE
  6. COLLAGEN [Concomitant]
     Active Substance: COLLAGEN
  7. BIOTIN [Concomitant]
     Active Substance: BIOTIN

REACTIONS (1)
  - Diarrhoea [Unknown]

NARRATIVE: CASE EVENT DATE: 20250508
